FAERS Safety Report 11098269 (Version 1)
Quarter: 2015Q2

REPORT INFORMATION
  Report Type: Report from Study
  Country: BR (occurrence: BR)
  Receive Date: 20150507
  Receipt Date: 20150507
  Transmission Date: 20150821
  Serious: Yes (Other)
  Sender: FDA-Public Use
  Company Number: PHHY2015BR050826

PATIENT
  Sex: Male
  Weight: 62 kg

DRUGS (2)
  1. RITALIN LA [Suspect]
     Active Substance: METHYLPHENIDATE HYDROCHLORIDE
     Indication: ATTENTION DEFICIT/HYPERACTIVITY DISORDER
     Dosage: 10 MG, QD
     Route: 065
     Dates: end: 2014
  2. CONCERTA [Suspect]
     Active Substance: METHYLPHENIDATE HYDROCHLORIDE
     Indication: ATTENTION DEFICIT/HYPERACTIVITY DISORDER
     Dosage: 18 MG, QD (1 CAPSULE)
     Route: 065

REACTIONS (5)
  - Sensory disturbance [Recovering/Resolving]
  - Muscle fatigue [Recovering/Resolving]
  - Tremor [Recovering/Resolving]
  - Pain [Recovering/Resolving]
  - Epilepsy [Recovering/Resolving]
